FAERS Safety Report 23569933 (Version 1)
Quarter: 2024Q1

REPORT INFORMATION
  Report Type: Other
  Country: US (occurrence: US)
  Receive Date: 20240227
  Receipt Date: 20240227
  Transmission Date: 20240409
  Serious: Yes (Death, Hospitalization, Other)
  Sender: FDA-Public Use
  Company Number: US-SIGA Technologies, Inc.-2153702

PATIENT
  Age: 69 Year
  Sex: Male

DRUGS (3)
  1. TPOXX [Suspect]
     Active Substance: TECOVIRIMAT
     Route: 042
     Dates: start: 20231208, end: 20231229
  2. BRINCIDOFOVIR [Suspect]
     Active Substance: BRINCIDOFOVIR
     Route: 048
     Dates: start: 20231214, end: 20231221
  3. VIGIV (immunoglobulin G human) [Concomitant]
     Route: 042
     Dates: start: 20231208, end: 20231208

REACTIONS (3)
  - Disease progression [Fatal]
  - Chills [Recovered/Resolved]
  - Death [Fatal]

NARRATIVE: CASE EVENT DATE: 20231208
